FAERS Safety Report 7488687-0 (Version None)
Quarter: 2011Q2

REPORT INFORMATION
  Report Type: 
  Country: None (occurrence: None)
  Receive Date: 20110518
  Receipt Date: 20110510
  Transmission Date: 20111010
  Serious: Yes (Hospitalization)
  Sender: FDA-Public Use
  Company Number: B0719085A

PATIENT
  Sex: Female

DRUGS (3)
  1. PAXIL [Suspect]
     Indication: EATING DISORDER
     Route: 048
  2. CONSTAN [Concomitant]
     Route: 048
  3. LAXATIVE [Concomitant]

REACTIONS (4)
  - HYPOKALAEMIA [None]
  - WEIGHT INCREASED [None]
  - HYPERPHAGIA [None]
  - OVERDOSE [None]
